FAERS Safety Report 4847805-0 (Version None)
Quarter: 2005Q4

REPORT INFORMATION
  Report Type: 
  Country: None (occurrence: None)
  Receive Date: 20051205
  Receipt Date: 20051129
  Transmission Date: 20060501
  Serious: Yes (Hospitalization)
  Sender: FDA-Public Use
  Company Number: B0369461A

PATIENT
  Age: 65 Year
  Sex: Female

DRUGS (2)
  1. PAROXETINE HCL [Suspect]
     Indication: DEPRESSION
     Dosage: 20 MG PER DAY
  2. AMITRIPTYLINE+PERPHENAZN. (AMITRIPTYLINE+PERPHENAZN.) (FORMULATION UNK [Suspect]
     Indication: DEPRESSION
     Dosage: 27 / THREE TIMES PER DAY / UNKNOWN

REACTIONS (2)
  - DYSKINESIA [None]
  - EXTRAPYRAMIDAL DISORDER [None]
